FAERS Safety Report 6131152-3 (Version None)
Quarter: 2009Q1

REPORT INFORMATION
  Report Type: 
  Country: None (occurrence: None)
  Receive Date: 20090325
  Receipt Date: 20090325
  Transmission Date: 20090719
  Serious: Yes (Death, Hospitalization)
  Sender: FDA-Public Use
  Company Number: PHHO2004FR06910

PATIENT
  Sex: Female
  Weight: 47 kg

DRUGS (1)
  1. CGS 20267 T30748+ [Suspect]
     Indication: BREAST CANCER
     Dosage: 2.5 MG, QD

REACTIONS (5)
  - CEREBRAL HAEMATOMA [None]
  - CEREBRAL HAEMORRHAGE [None]
  - COMA [None]
  - FALL [None]
  - LOSS OF CONSCIOUSNESS [None]
